FAERS Safety Report 7076926-X (Version None)
Quarter: 2010Q4

REPORT INFORMATION
  Report Type: 
  Country: None (occurrence: None)
  Receive Date: 20101029
  Receipt Date: 20101029
  Transmission Date: 20110411
  Serious: Yes (Other)
  Sender: FDA-Public Use
  Company Number: None

PATIENT
  Age: 32 Year
  Sex: Female
  Weight: 54.4316 kg

DRUGS (1)
  1. CYMBALTA [Suspect]
     Indication: FIBROMYALGIA
     Dosage: 30MG 1 DAILY PO
     Route: 048
     Dates: start: 20080603, end: 20101022

REACTIONS (2)
  - DRUG WITHDRAWAL SYNDROME [None]
  - PERIPHERAL NERVE NEUROSTIMULATION [None]
